FAERS Safety Report 8342058-3 (Version None)
Quarter: 2012Q2

REPORT INFORMATION
  Report Type: 
  Country: None (occurrence: None)
  Receive Date: 20120507
  Receipt Date: 20120423
  Transmission Date: 20120825
  Serious: Yes (Other)
  Sender: FDA-Public Use
  Company Number: IT-ROCHE-1064537

PATIENT
  Sex: Female

DRUGS (9)
  1. OMALIZUMAB [Suspect]
     Indication: ASTHMA
     Dates: start: 20111103
  2. OMALIZUMAB [Suspect]
     Dates: start: 20111117
  3. OMALIZUMAB [Suspect]
     Dates: start: 20120126
  4. METHYLPREDNISOLONE [Concomitant]
     Dates: start: 20110331, end: 20111229
  5. PREDNISONE TAB [Concomitant]
     Dates: start: 20101028, end: 20111103
  6. MONTELUKAST [Concomitant]
     Dates: start: 20101028, end: 20111103
  7. FLUTICASONE PROPIONATE/SALMETEROL [Concomitant]
     Dates: start: 20050721, end: 20111103
  8. OMALIZUMAB [Suspect]
     Dates: start: 20111229
  9. OMALIZUMAB [Suspect]
     Dates: start: 20120301

REACTIONS (6)
  - VOMITING [None]
  - NAUSEA [None]
  - PRURITUS GENERALISED [None]
  - PYREXIA [None]
  - PARAESTHESIA ORAL [None]
  - ORAL ALLERGY SYNDROME [None]
